FAERS Safety Report 4324694-4 (Version None)
Quarter: 2004Q1

REPORT INFORMATION
  Report Type: 
  Country: None (occurrence: None)
  Receive Date: 20040323
  Receipt Date: 20040315
  Transmission Date: 20041129
  Serious: Yes (Disabling)
  Sender: FDA-Public Use
  Company Number: 2004203652US

PATIENT
  Sex: Female

DRUGS (1)
  1. ALDACTAZIDE [Suspect]
     Dates: end: 20040301

REACTIONS (5)
  - ASTHENIA [None]
  - DYSSTASIA [None]
  - FALL [None]
  - HYPOAESTHESIA [None]
  - PAIN IN EXTREMITY [None]
